FAERS Safety Report 7264951-5 (Version None)
Quarter: 2011Q1

REPORT INFORMATION
  Report Type: 
  Country: None (occurrence: None)
  Receive Date: 20110131
  Receipt Date: 20101130
  Transmission Date: 20110831
  Serious: Yes (Hospitalization, Other)
  Sender: FDA-Public Use
  Company Number: US-BAYER-201038278NA

PATIENT
  Sex: Female
  Weight: 66 kg

DRUGS (20)
  1. YAZ [Suspect]
     Indication: ACNE
     Dosage: UNK
  2. MIRALAX [Concomitant]
     Dosage: UNK
     Dates: start: 20040527
  3. ANTIBIOTICS [Concomitant]
     Indication: INFECTION
  4. PROCTOFOAM HC [Concomitant]
     Dosage: UNK
     Dates: start: 20040604
  5. HYOSCYAMINE [Concomitant]
     Dosage: UNK
     Route: 048
  6. MULTI-VITAMIN [Concomitant]
  7. PAXIL [Concomitant]
     Indication: DEPRESSION
     Dosage: 20 MG, QD
     Route: 048
  8. YASMIN [Suspect]
     Indication: ACNE
     Dosage: UNK
     Dates: start: 20040301
  9. ATROVENT [Concomitant]
     Dosage: UNK UNK, PRN
  10. ANAPROX [Concomitant]
  11. OCELLA [Suspect]
  12. LEVOXYL [Concomitant]
  13. ASCORBIC ACID [Concomitant]
     Indication: NASOPHARYNGITIS
  14. NSAID'S [Concomitant]
     Indication: HEADACHE
     Dosage: UNK UNK, PRN
  15. PAXIL [Concomitant]
     Indication: ANXIETY
  16. YASMIN [Suspect]
     Indication: CONTRACEPTION
  17. EFFEXOR [Concomitant]
     Dosage: 75 MG, QD
  18. HYDROCODONE BITARTRATE AND ACETAMINOPHEN [Concomitant]
     Route: 048
  19. GUAIFENESIN [Concomitant]
     Dosage: UNK
     Route: 048
     Dates: start: 20040603
  20. AMOXICILLIN [Concomitant]
     Dosage: UNK
     Route: 048
     Dates: start: 20040608

REACTIONS (7)
  - CHOLECYSTITIS CHRONIC [None]
  - ABDOMINAL PAIN UPPER [None]
  - NAUSEA [None]
  - SWELLING [None]
  - ABDOMINAL DISTENSION [None]
  - PELVIC PAIN [None]
  - URINARY RETENTION [None]
